FAERS Safety Report 6665968-1 (Version None)
Quarter: 2010Q2

REPORT INFORMATION
  Report Type: 
  Country: None (occurrence: None)
  Receive Date: 20100402
  Receipt Date: 20100324
  Transmission Date: 20101027
  Serious: Yes (Other)
  Sender: FDA-Public Use
  Company Number: US-PFIZER INC-2010038186

PATIENT
  Sex: Female
  Weight: 54.422 kg

DRUGS (15)
  1. REVATIO [Suspect]
     Indication: PULMONARY ARTERIAL HYPERTENSION
     Dosage: 20 MG, 2X/DAY
     Route: 048
     Dates: start: 20100318, end: 20100323
  2. VALSARTAN [Concomitant]
     Dosage: 160 MG, 1X/DAY
     Route: 048
  3. FLUOXETINE HYDROCHLORIDE [Concomitant]
     Indication: DEPRESSION
     Dosage: 20 MG, 1X/DAY
     Route: 048
  4. WARFARIN [Concomitant]
     Indication: ANTIPLATELET THERAPY
     Dosage: 15 MG, 1X/DAY
     Route: 048
  5. SIMVASTATIN [Concomitant]
     Indication: BLOOD CHOLESTEROL INCREASED
     Dosage: 40 MG, 1X/DAY
     Route: 048
  6. OMEPRAZOLE [Concomitant]
     Indication: GASTROOESOPHAGEAL REFLUX DISEASE
     Dosage: 20 MG, 2X/DAY
     Route: 048
  7. ALPRAZOLAM [Concomitant]
     Indication: ANXIETY
     Dosage: 0.25 MG, 3X/DAY
     Route: 048
  8. SOTALOL [Concomitant]
     Indication: CARDIAC DISORDER
     Dosage: 200 MG, UNK
     Route: 048
  9. SOTALOL [Concomitant]
     Indication: BLOOD PRESSURE
  10. KLOR-CON [Concomitant]
     Indication: SURGERY
     Dosage: UNK
     Route: 048
  11. PROPOXYPHENE HCL [Concomitant]
     Indication: ARTHRITIS
     Dosage: UNK
     Route: 048
  12. TRACLEER [Concomitant]
     Indication: LUNG DISORDER
     Dosage: 125 MG, 2X/DAY
  13. MULTI-VITAMINS [Concomitant]
     Dosage: UNK
     Route: 048
  14. LOVAZA [Concomitant]
     Indication: CARDIAC DISORDER
     Dosage: UNK
     Route: 048
  15. ACETYLSALICYLIC ACID [Concomitant]
     Dosage: 81 MG, 1X/DAY
     Route: 048

REACTIONS (4)
  - DYSPNOEA [None]
  - HEART RATE INCREASED [None]
  - HYPOTENSION [None]
  - MUSCULAR WEAKNESS [None]
